FAERS Safety Report 6204687-2 (Version None)
Quarter: 2009Q2

REPORT INFORMATION
  Report Type: 
  Country: None (occurrence: None)
  Receive Date: 20090527
  Receipt Date: 20090519
  Transmission Date: 20091009
  Serious: Yes (Other)
  Sender: FDA-Public Use
  Company Number: PHEH2009US04285

PATIENT
  Sex: Female

DRUGS (6)
  1. MIACALCIN [Suspect]
  2. CARTIA XT [Concomitant]
     Dosage: 180 MG, UNK
  3. PREVACID [Concomitant]
     Dosage: 30 MG, UNK
  4. CLARINEX                                /USA/ [Concomitant]
  5. LOPRESSOR [Concomitant]
     Dosage: 25 MG, UNK
  6. PLAVIX [Concomitant]
     Dosage: 75 MG, UNK

REACTIONS (5)
  - BONE DENSITY DECREASED [None]
  - BONE DISORDER [None]
  - DRUG INEFFECTIVE [None]
  - FRACTURE [None]
  - HIP FRACTURE [None]
